FAERS Safety Report 4918499-0 (Version None)
Quarter: 2006Q1

REPORT INFORMATION
  Report Type: 
  Country: None (occurrence: None)
  Receive Date: 20060217
  Receipt Date: 20060217
  Transmission Date: 20060701
  Serious: Yes (Life-Threatening, Disabling)
  Sender: FDA-Public Use
  Company Number: None

PATIENT
  Age: 67 Year
  Sex: Female
  Weight: 63.5036 kg

DRUGS (2)
  1. HERCEPTIN [Suspect]
     Indication: BREAST CANCER
     Dates: start: 20060211, end: 20060211
  2. HERCEPTIN [Suspect]
     Indication: OESTROGEN RECEPTOR ASSAY POSITIVE
     Dates: start: 20060211, end: 20060211

REACTIONS (4)
  - ADVERSE DRUG REACTION [None]
  - ANAPHYLACTIC SHOCK [None]
  - DYSPNOEA [None]
  - OXYGEN SATURATION ABNORMAL [None]
